FAERS Safety Report 21847480 (Version 1)
Quarter: 2023Q1

REPORT INFORMATION
  Report Type: Spontaneous
  Country: US (occurrence: None)
  Receive Date: 20230110
  Receipt Date: 20230110
  Transmission Date: 20230418
  Serious: Yes (Hospitalization)
  Sender: FDA-Public Use
  Company Number: None

PATIENT
  Age: 72 Year
  Sex: Male
  Weight: 110 kg

DRUGS (1)
  1. LOSARTAN [Suspect]
     Active Substance: LOSARTAN
     Indication: Hypertension
     Dosage: FREQUENCY : DAILY;?
     Route: 048
     Dates: start: 20200914, end: 20211112

REACTIONS (11)
  - Burning sensation [None]
  - Rash [None]
  - Rash [None]
  - Rash pruritic [None]
  - Exfoliative rash [None]
  - Rash [None]
  - Rash [None]
  - Rash [None]
  - Rash [None]
  - Pemphigus [None]
  - Pityriasis rubra pilaris [None]

NARRATIVE: CASE EVENT DATE: 20211014
